FAERS Safety Report 5972684-8 (Version None)
Quarter: 2008Q4

REPORT INFORMATION
  Report Type: 
  Country: None (occurrence: None)
  Receive Date: 20081125
  Receipt Date: 20081107
  Transmission Date: 20090506
  Serious: Yes (Hospitalization)
  Sender: FDA-Public Use
  Company Number: 2008BI030939

PATIENT
  Age: 63 Year
  Sex: Male

DRUGS (13)
  1. ZEVALIN [Suspect]
     Indication: NON-HODGKIN'S LYMPHOMA
     Dosage: 31 MCI; 1X; IV
     Route: 042
     Dates: start: 20081010, end: 20081010
  2. RITUXIMAB [Concomitant]
  3. AMBISOME [Concomitant]
  4. ACYCLOVIR [Concomitant]
  5. NEUPOGEN [Concomitant]
  6. CYCLOSPORINE [Concomitant]
  7. FUROSEMIDE [Concomitant]
  8. VANCOMYCIN [Concomitant]
  9. AMPHOTERICIN B [Concomitant]
  10. CEFEPIME [Concomitant]
  11. FLUDARABINE PHOSPHATE [Concomitant]
  12. MELPHALAN [Concomitant]
  13. THIOTEPA [Concomitant]

REACTIONS (6)
  - ACUTE PULMONARY OEDEMA [None]
  - ASPARTATE AMINOTRANSFERASE INCREASED [None]
  - BLOOD ALBUMIN DECREASED [None]
  - CARDIAC FAILURE CONGESTIVE [None]
  - HAEMODIALYSIS [None]
  - HAEMOGLOBIN DECREASED [None]
